FAERS Safety Report 16996628 (Version 1)
Quarter: 2019Q4

REPORT INFORMATION
  Report Type: Spontaneous
  Country: US (occurrence: US)
  Receive Date: 20191105
  Receipt Date: 20191105
  Transmission Date: 20200122
  Serious: No
  Sender: FDA-Public Use
  Company Number: US-SA-2019SA304802

PATIENT
  Sex: Female

DRUGS (2)
  1. COPAXONE [Concomitant]
     Active Substance: GLATIRAMER ACETATE
  2. AUBAGIO [Suspect]
     Active Substance: TERIFLUNOMIDE
     Indication: MULTIPLE SCLEROSIS
     Dosage: 14 MG, QD
     Route: 048
     Dates: start: 201910

REACTIONS (2)
  - Gait disturbance [Unknown]
  - Pain in extremity [Unknown]
